FAERS Safety Report 18415152 (Version 2)
Quarter: 2021Q2

REPORT INFORMATION
  Report Type: Spontaneous
  Country: US (occurrence: US)
  Receive Date: 20201022
  Receipt Date: 20210427
  Transmission Date: 20210717
  Serious: Yes (Other)
  Sender: FDA-Public Use
  Company Number: US-SA-2020SA294275

PATIENT
  Age: 57 Year
  Sex: Female
  Weight: 72.5 kg

DRUGS (2)
  1. TAXOTERE [Suspect]
     Active Substance: DOCETAXEL
     Indication: BREAST CANCER FEMALE
     Dosage: 157 MG, Q3W
     Route: 065
     Dates: start: 20140106, end: 20140106
  2. TAXOTERE [Suspect]
     Active Substance: DOCETAXEL
     Dosage: 157 MG, Q3W
     Route: 065
     Dates: start: 20140217, end: 20140217

REACTIONS (2)
  - Emotional distress [Unknown]
  - Alopecia [Not Recovered/Not Resolved]

NARRATIVE: CASE EVENT DATE: 201402
